FAERS Safety Report 6934203-9 (Version None)
Quarter: 2010Q3

REPORT INFORMATION
  Report Type: 
  Country: None (occurrence: None)
  Receive Date: 20100820
  Receipt Date: 20100810
  Transmission Date: 20110219
  Serious: Yes (Hospitalization)
  Sender: FDA-Public Use
  Company Number: BR-ABBOTT-10P-020-0663583-00

PATIENT
  Sex: Male
  Weight: 75 kg

DRUGS (1)
  1. HUMIRA [Suspect]
     Indication: ANKYLOSING SPONDYLITIS
     Dosage: 1-40 MG DOSE
     Route: 058
     Dates: start: 20100501, end: 20100501

REACTIONS (2)
  - BLOOD CHOLESTEROL INCREASED [None]
  - HYPOAESTHESIA [None]
